FAERS Safety Report 6846987-9 (Version None)
Quarter: 2010Q3

REPORT INFORMATION
  Report Type: 
  Country: None (occurrence: None)
  Receive Date: 20100713
  Receipt Date: 20100708
  Transmission Date: 20110219
  Serious: Yes (Death)
  Sender: FDA-Public Use
  Company Number: 2010SP038105

PATIENT
  Age: 38 Year
  Sex: Male

DRUGS (3)
  1. MIRTAZAPINE [Suspect]
     Indication: DEPRESSION
     Dosage: 15 MG; QD; PO
     Route: 048
     Dates: start: 20100518, end: 20100703
  2. ETHYL LOFLAZEPATE [Concomitant]
  3. TOLEDOMIN [Concomitant]

REACTIONS (1)
  - COMPLETED SUICIDE [None]
